FAERS Safety Report 10155454 (Version 1)
Quarter: 2014Q2

REPORT INFORMATION
  Report Type: Report from Study
  Country: US (occurrence: US)
  Receive Date: 20140506
  Receipt Date: 20140506
  Transmission Date: 20141212
  Serious: Yes (Other)
  Sender: FDA-Public Use
  Company Number: US-JNJFOC-20140419781

PATIENT
  Sex: Female
  Weight: 74.84 kg

DRUGS (6)
  1. REMICADE [Suspect]
     Indication: RHEUMATOID ARTHRITIS
     Route: 042
     Dates: start: 2012
  2. PREDNISONE [Suspect]
     Indication: PRODUCT USED FOR UNKNOWN INDICATION
     Route: 048
  3. PREVACID [Concomitant]
     Indication: GASTROINTESTINAL DISORDER
     Route: 048
  4. TOPROL [Concomitant]
     Indication: MITRAL VALVE PROLAPSE
     Route: 048
     Dates: start: 2004
  5. LEVOTHYROXINE [Concomitant]
     Indication: HYPOTHYROIDISM
     Dosage: 100 MCG, FOR 25 YEARS
     Route: 048
  6. PLAQUENIL [Concomitant]
     Indication: RHEUMATOID ARTHRITIS
     Dosage: FOR 5 TO 6 YEARS
     Route: 048

REACTIONS (6)
  - Ankle fracture [Recovered/Resolved]
  - Tendon rupture [Not Recovered/Not Resolved]
  - Fall [Recovered/Resolved]
  - Haemorrhage [Not Recovered/Not Resolved]
  - Osteoarthritis [Not Recovered/Not Resolved]
  - Pain in extremity [Not Recovered/Not Resolved]
